FAERS Safety Report 10134013 (Version 1)
Quarter: 2014Q2

REPORT INFORMATION
  Report Type: Report from Study
  Country: ES (occurrence: ES)
  Receive Date: 20140428
  Receipt Date: 20140428
  Transmission Date: 20141212
  Serious: Yes (Hospitalization)
  Sender: FDA-Public Use
  Company Number: ES-ABBVIE-14P-144-1230638-00

PATIENT
  Age: 42 Year
  Sex: Female
  Weight: 77 kg

DRUGS (10)
  1. RITONAVIR [Suspect]
     Indication: HIV INFECTION
     Route: 048
     Dates: start: 20120313
  2. REYATAZ [Concomitant]
     Indication: HIV INFECTION
     Route: 048
     Dates: start: 20120412
  3. LAMIVUDINE [Concomitant]
     Indication: HIV INFECTION
     Route: 048
     Dates: start: 20120312
  4. AMOXICILLINE-CLAVULANIC [Concomitant]
     Indication: ABSCESS
     Route: 042
     Dates: start: 20131121, end: 20131124
  5. RANTIDINE [Concomitant]
     Indication: ABSCESS
     Route: 042
     Dates: start: 20131122, end: 20131126
  6. URBASON [Concomitant]
     Indication: ABSCESS
     Route: 051
     Dates: start: 20131122, end: 20131126
  7. ENANTYUM [Concomitant]
     Indication: ABSCESS
     Route: 051
     Dates: start: 20131123, end: 20131123
  8. PARACETAMOL [Concomitant]
     Indication: ABSCESS
     Route: 042
     Dates: start: 20131124, end: 20131124
  9. NOTOTIL [Concomitant]
     Indication: ABSCESS
     Route: 042
     Dates: start: 20131122, end: 20131126
  10. TRANXILIUM [Concomitant]
     Indication: ABSCESS
     Route: 048
     Dates: start: 20131122, end: 20131126

REACTIONS (1)
  - Staphylococcal abscess [Recovering/Resolving]
